FAERS Safety Report 5601752-5 (Version None)
Quarter: 2008Q1

REPORT INFORMATION
  Report Type: 
  Country: None (occurrence: None)
  Receive Date: 20080111
  Receipt Date: 20071005
  Transmission Date: 20080703
  Serious: Yes (Other)
  Sender: FDA-Public Use
  Company Number: HQWYE690811OCT04

PATIENT
  Age: 56 Year
  Sex: Female

DRUGS (8)
  1. PREMPRO [Suspect]
     Indication: CARDIAC DISORDER
  2. PREMPRO [Suspect]
     Indication: MENOPAUSAL SYMPTOMS
  3. PREMPRO [Suspect]
     Indication: OSTEOPOROSIS
  4. PREMPRO [Suspect]
     Indication: PROPHYLAXIS
  5. ACTIVELLA [Suspect]
  6. PREMARIN [Suspect]
  7. PROVERA [Suspect]
  8. PREMARIN [Concomitant]

REACTIONS (1)
  - BREAST CANCER [None]
